FAERS Safety Report 24089397 (Version 1)
Quarter: 2024Q3

REPORT INFORMATION
  Report Type: Spontaneous
  Country: US (occurrence: US)
  Receive Date: 20240715
  Receipt Date: 20240715
  Transmission Date: 20241017
  Serious: Yes (Other)
  Sender: Unknown Manufacturer
  Company Number: US-862174955-ML2024-03892

PATIENT
  Age: 76 Year
  Sex: Female

DRUGS (2)
  1. TOBRAMYCIN [Suspect]
     Active Substance: TOBRAMYCIN\TOBRAMYCIN SULFATE
     Indication: Pneumonia pseudomonal
     Dosage: INHALED TOBRAMYCIN
     Route: 055
  2. TOBRAMYCIN [Suspect]
     Active Substance: TOBRAMYCIN\TOBRAMYCIN SULFATE
     Indication: Bronchiectasis

REACTIONS (4)
  - Acute kidney injury [Recovered/Resolved]
  - Bacteraemia [Unknown]
  - Nephropathy toxic [Recovered/Resolved]
  - Therapy cessation [Unknown]
